FAERS Safety Report 5078314-4 (Version None)
Quarter: 2006Q3

REPORT INFORMATION
  Report Type: 
  Country: None (occurrence: None)
  Receive Date: 20060720
  Receipt Date: 20060608
  Transmission Date: 20061208
  Serious: No
  Sender: FDA-Public Use
  Company Number: HQWYE211013JUN06

PATIENT
  Age: 79 Year
  Sex: Female
  Weight: 71.73 kg

DRUGS (4)
  1. ADVIL PM [Suspect]
     Indication: BACK PAIN
     Dosage: SEE IMAGE
     Route: 048
     Dates: start: 20060501, end: 20060101
  2. ADVIL PM [Suspect]
     Indication: BACK PAIN
     Dosage: SEE IMAGE
     Route: 048
     Dates: start: 20060101, end: 20060606
  3. UNSPECIFIED THYROID MEDICATION (UNSPECIFIED THYROID MEDICATION) [Concomitant]
  4. ADVIL [Concomitant]

REACTIONS (1)
  - DRUG INEFFECTIVE [None]
